FAERS Safety Report 4827655-1 (Version None)
Quarter: 2005Q4

REPORT INFORMATION
  Report Type: 
  Country: None (occurrence: None)
  Receive Date: 20051114
  Receipt Date: 20050803
  Transmission Date: 20060501
  Serious: Yes (Hospitalization, Other)
  Sender: FDA-Public Use
  Company Number: US-MERCK-0508USA01263

PATIENT
  Age: 49 Year
  Sex: Female
  Weight: 84 kg

DRUGS (15)
  1. VIOXX [Suspect]
     Indication: OSTEOARTHRITIS
     Route: 048
     Dates: start: 20010403, end: 20020313
  2. VIOXX [Suspect]
     Route: 048
     Dates: start: 20011201, end: 20040801
  3. VIOXX [Suspect]
     Route: 048
     Dates: start: 20010403, end: 20020313
  4. VIOXX [Suspect]
     Route: 048
     Dates: start: 20011201, end: 20040801
  5. TOPROL-XL [Concomitant]
     Indication: HYPERTENSION
     Route: 065
     Dates: start: 20011101
  6. TOPROL-XL [Concomitant]
     Route: 065
     Dates: start: 20011101
  7. PLAVIX [Concomitant]
     Route: 065
     Dates: start: 20011101
  8. LIPITOR [Concomitant]
     Route: 065
     Dates: start: 20030701
  9. ZOCOR [Concomitant]
     Route: 065
     Dates: start: 20011101, end: 20020601
  10. TYLENOL W/ CODEINE [Concomitant]
     Indication: PAIN
     Route: 065
     Dates: start: 20021101
  11. DARVOCET-N 100 [Concomitant]
     Indication: PAIN
     Route: 065
     Dates: start: 20021101
  12. ADVIL [Concomitant]
     Indication: PAIN
     Route: 065
  13. DESYREL [Concomitant]
     Route: 065
  14. FLEXERIL [Concomitant]
     Route: 065
  15. NITROSTAT [Concomitant]
     Route: 065

REACTIONS (5)
  - ANGINA PECTORIS [None]
  - CARDIOVASCULAR DISORDER [None]
  - HYPERLIPIDAEMIA [None]
  - HYPERTENSION [None]
  - MYOCARDIAL INFARCTION [None]
